FAERS Safety Report 18954291 (Version 4)
Quarter: 2022Q2

REPORT INFORMATION
  Report Type: Spontaneous
  Country: US (occurrence: US)
  Receive Date: 20210301
  Receipt Date: 20220406
  Transmission Date: 20220721
  Serious: No
  Sender: FDA-Public Use
  Company Number: US-PFIZER INC-2021192349

PATIENT
  Age: 13 Year
  Sex: Female

DRUGS (5)
  1. GENOTROPIN [Suspect]
     Active Substance: SOMATROPIN
     Dosage: 2.5 MG, ALTERNATE DAY [ALTERNATE 2.5MG AND 2.6MG DAILY]
     Dates: start: 20190318
  2. GENOTROPIN [Suspect]
     Active Substance: SOMATROPIN
     Dosage: 2.6 MG, ALTERNATE DAY [ALTERNATE 2.5MG AND 2.6MG DAILY]
     Dates: start: 20190318
  3. GENOTROPIN [Suspect]
     Active Substance: SOMATROPIN
     Dosage: 2.4 MG, ALTERNATE DAY (2.4MG ALTERNATING WITH 2.6MG 7 DAYS A WEEK)
     Dates: start: 20190318
  4. GENOTROPIN [Suspect]
     Active Substance: SOMATROPIN
     Dosage: 2.6 MG, ALTERNATE DAY (2.4MG ALTERNATING WITH 2.6MG 7 DAYS A WEEK)
     Dates: start: 20190318
  5. GENOTROPIN [Suspect]
     Active Substance: SOMATROPIN
     Dosage: 2.5 MG, DAILY
     Dates: start: 201903

REACTIONS (4)
  - Intentional device misuse [Unknown]
  - Device breakage [Unknown]
  - Device issue [Unknown]
  - Device use issue [Unknown]
